FAERS Safety Report 22395355 (Version 1)
Quarter: 2023Q2

REPORT INFORMATION
  Report Type: Spontaneous
  Country: FR (occurrence: FR)
  Receive Date: 20230601
  Receipt Date: 20230601
  Transmission Date: 20230722
  Serious: Yes (Other)
  Sender: FDA-Public Use
  Company Number: None

PATIENT
  Age: 76 Year
  Sex: Male
  Weight: 66 kg

DRUGS (5)
  1. RUXIENCE [Suspect]
     Active Substance: RITUXIMAB-PVVR
     Indication: B-cell lymphoma
     Dosage: 660 MG, CYCLIC (FORMULATION: CONCENTRATE FOR SOLUTION FOR INFUSION)
     Route: 042
     Dates: start: 20230112, end: 20230329
  2. MESNA [Suspect]
     Active Substance: MESNA
     Indication: B-cell lymphoma
     Dosage: 2000 MG (29MAR) AND 1000 MG (30MAR)
     Route: 042
     Dates: start: 20230112, end: 20230330
  3. ONDANSETRON [Suspect]
     Active Substance: ONDANSETRON
     Indication: Prophylaxis of nausea and vomiting
     Dosage: 4 MG/2ML
     Route: 042
     Dates: end: 20230329
  4. IFOSFAMIDE [Suspect]
     Active Substance: IFOSFAMIDE
     Indication: B-cell lymphoma
     Dosage: 2000 MG, CYCLIC (FORMULATION: POWDER FOR PARENTERAL USE)
     Route: 042
     Dates: start: 20230112, end: 20230329
  5. ETOPOSIDE [Suspect]
     Active Substance: ETOPOSIDE
     Indication: B-cell lymphoma
     Dosage: 200 MG/10ML, CYCLIC (FORMULATION: SOLUTION FOR INJECTION FOR INFUSION)
     Route: 042
     Dates: start: 20230112, end: 20230329

REACTIONS (1)
  - Seizure [Recovered/Resolved]

NARRATIVE: CASE EVENT DATE: 20230330
